FAERS Safety Report 16133138 (Version 2)
Quarter: 2019Q2

REPORT INFORMATION
  Report Type: Report from Study
  Country: None (occurrence: PT)
  Receive Date: 20190329
  Receipt Date: 20190402
  Transmission Date: 20190711
  Serious: Yes (Other)
  Sender: FDA-Public Use
  Company Number: PT-ABBVIE-19S-130-2721146-00

PATIENT
  Age: 81 Year
  Sex: Female

DRUGS (3)
  1. DUODOPA [Suspect]
     Active Substance: CARBIDOPA\LEVODOPA
     Indication: PARKINSON^S DISEASE
     Dosage: 20 MG LEVODOPA + 5 MG CARBIDOPA
     Route: 050
     Dates: start: 20091113
  2. DUODOPA [Suspect]
     Active Substance: CARBIDOPA\LEVODOPA
     Dosage: 20 MG LEVODOPA + 5 MG CARBIDOPA
     Route: 050
     Dates: start: 20190228
  3. XARELTO [Concomitant]
     Active Substance: RIVAROXABAN
     Indication: PRODUCT USED FOR UNKNOWN INDICATION
     Dates: end: 20190320

REACTIONS (6)
  - Colitis ischaemic [Not Recovered/Not Resolved]
  - Rectal haemorrhage [Recovered/Resolved]
  - Rectal ulcer [Not Recovered/Not Resolved]
  - Abdominal pain [Unknown]
  - Rectal haemorrhage [Unknown]
  - Mucosal ulceration [Not Recovered/Not Resolved]

NARRATIVE: CASE EVENT DATE: 20190320
